FAERS Safety Report 16594381 (Version 1)
Quarter: 2019Q3

REPORT INFORMATION
  Report Type: Other
  Country: US (occurrence: US)
  Receive Date: 20190718
  Receipt Date: 20190718
  Transmission Date: 20191004
  Serious: No
  Sender: FDA-Public Use
  Company Number: US-SWEDISH ORPHAN BIOVITRUM-2019US0077

PATIENT
  Age: 62 Year
  Sex: Male

DRUGS (7)
  1. LISINOPRIL. [Concomitant]
     Active Substance: LISINOPRIL
  2. ARMOURTHYROID [Concomitant]
  3. KINERET [Suspect]
     Active Substance: ANAKINRA
     Route: 058
     Dates: start: 20190103
  4. TAMSULOSIN [Concomitant]
     Active Substance: TAMSULOSIN
  5. IBUPROFEN. [Concomitant]
     Active Substance: IBUPROFEN
  6. VITAMIN D3 [Concomitant]
     Active Substance: CHOLECALCIFEROL
  7. MULTIVITAMIN [Concomitant]
     Active Substance: VITAMINS

REACTIONS (1)
  - Injection site pain [Unknown]

NARRATIVE: CASE EVENT DATE: 201901
